FAERS Safety Report 9527781 (Version 2)
Quarter: 2013Q4

REPORT INFORMATION
  Report Type: Spontaneous
  Country: US (occurrence: US)
  Receive Date: 20130917
  Receipt Date: 20131126
  Transmission Date: 20140711
  Serious: Yes (Death)
  Sender: FDA-Public Use
  Company Number: US-CELGENEUS-163-21880-13091966

PATIENT
  Age: 50 Year
  Sex: Female

DRUGS (2)
  1. REVLIMID [Suspect]
     Indication: WALDENSTROM^S MACROGLOBULINAEMIA
     Dosage: 5 MILLIGRAM
     Route: 048
     Dates: start: 20111128, end: 20121219
  2. REVLIMID [Suspect]
     Indication: PLASMA CELL MYELOMA

REACTIONS (1)
  - Waldenstrom^s macroglobulinaemia [Fatal]
